FAERS Safety Report 11926501 (Version 1)
Quarter: 2016Q1

REPORT INFORMATION
  Report Type: Spontaneous
  Country: US (occurrence: US)
  Receive Date: 20160119
  Receipt Date: 20160119
  Transmission Date: 20160526
  Serious: Yes (Other)
  Sender: FDA-Public Use
  Company Number: US-TEVA-625140USA

PATIENT
  Age: 67 Year
  Sex: Male

DRUGS (3)
  1. TRIAMCINOLONE [Interacting]
     Active Substance: TRIAMCINOLONE
     Dosage: 460MG (24 INJECTIONS)
     Route: 014
     Dates: start: 2010
  2. METHYLPREDNISOLONE. [Suspect]
     Active Substance: METHYLPREDNISOLONE
     Dosage: 400MG
     Route: 014
     Dates: start: 2010
  3. RITONAVIR. [Interacting]
     Active Substance: RITONAVIR
     Indication: ANTIRETROVIRAL THERAPY
     Route: 065
     Dates: start: 199707

REACTIONS (3)
  - Drug interaction [Recovering/Resolving]
  - Myopathy [Recovering/Resolving]
  - Adrenal insufficiency [Recovering/Resolving]
